FAERS Safety Report 25691846 (Version 1)
Quarter: 2025Q3

REPORT INFORMATION
  Report Type: Spontaneous
  Country: EU (occurrence: EU)
  Receive Date: 20250818
  Receipt Date: 20250818
  Transmission Date: 20251021
  Serious: Yes (Other)
  Sender: MYLAN
  Company Number: None

PATIENT
  Age: 64 Year
  Sex: Male

DRUGS (8)
  1. SUNITINIB [Suspect]
     Active Substance: SUNITINIB
     Indication: Renal cancer
     Dosage: 50 MILLIGRAM, QD, (1X1 6 CYCLES AT A DOSE OF 50 MG ONCE DAILY)
     Route: 048
     Dates: start: 20200123
  2. SUNITINIB [Suspect]
     Active Substance: SUNITINIB
     Dosage: 50 MILLIGRAM, QD, (1X1 6 CYCLES AT A DOSE OF 50 MG ONCE DAILY)
     Dates: start: 20200123
  3. SUNITINIB [Suspect]
     Active Substance: SUNITINIB
     Dosage: 50 MILLIGRAM, QD, (1X1 6 CYCLES AT A DOSE OF 50 MG ONCE DAILY)
     Dates: start: 20200123
  4. SUNITINIB [Suspect]
     Active Substance: SUNITINIB
     Dosage: 50 MILLIGRAM, QD, (1X1 6 CYCLES AT A DOSE OF 50 MG ONCE DAILY)
     Route: 048
     Dates: start: 20200123
  5. SUNITINIB [Suspect]
     Active Substance: SUNITINIB
     Dosage: 37.5 MILLIGRAM, QD (7TH CYCLE, REDUCTION OF THE DOSE TO 37.5 MG ONCE DAILY)
     Route: 048
  6. SUNITINIB [Suspect]
     Active Substance: SUNITINIB
     Dosage: 37.5 MILLIGRAM, QD (7TH CYCLE, REDUCTION OF THE DOSE TO 37.5 MG ONCE DAILY)
  7. SUNITINIB [Suspect]
     Active Substance: SUNITINIB
     Dosage: 37.5 MILLIGRAM, QD (7TH CYCLE, REDUCTION OF THE DOSE TO 37.5 MG ONCE DAILY)
  8. SUNITINIB [Suspect]
     Active Substance: SUNITINIB
     Dosage: 37.5 MILLIGRAM, QD (7TH CYCLE, REDUCTION OF THE DOSE TO 37.5 MG ONCE DAILY)
     Route: 048

REACTIONS (3)
  - Myalgia [Unknown]
  - Polyneuropathy [Unknown]
  - Palmar-plantar erythrodysaesthesia syndrome [Unknown]
